FAERS Safety Report 11506751 (Version 1)
Quarter: 2015Q3

REPORT INFORMATION
  Report Type: Spontaneous
  Country: US (occurrence: US)
  Receive Date: 20150915
  Receipt Date: 20150915
  Transmission Date: 20151125
  Serious: Yes (Hospitalization)
  Sender: FDA-Public Use
  Company Number: US-ROCHE-798335

PATIENT
  Sex: Male

DRUGS (3)
  1. PEGASYS [Suspect]
     Active Substance: PEGINTERFERON ALFA-2A
     Indication: PRODUCT USED FOR UNKNOWN INDICATION
     Dosage: FORM, FREQUENCY AND ROUTE: UNKNOWN
     Route: 065
  2. INCIVO [Concomitant]
     Active Substance: TELAPREVIR
     Dosage: DRUG REPORTED AS INCIVEK
     Route: 065
  3. RIBAVIRIN. [Suspect]
     Active Substance: RIBAVIRIN
     Indication: PRODUCT USED FOR UNKNOWN INDICATION
     Dosage: FORM, FREQUENCY AND ROUTE: UNKNOWN
     Route: 065

REACTIONS (1)
  - Rash [Unknown]
